FAERS Safety Report 9816671 (Version 1)
Quarter: 2014Q1

REPORT INFORMATION
  Report Type: Spontaneous
  Country: US (occurrence: US)
  Receive Date: 20140114
  Receipt Date: 20140114
  Transmission Date: 20141002
  Serious: No
  Sender: FDA-Public Use
  Company Number: US-TEVA-456311USA

PATIENT
  Age: 26 Year
  Sex: Female
  Weight: 52.21 kg

DRUGS (7)
  1. PLAN B ONE-STEP [Suspect]
     Indication: POST COITAL CONTRACEPTION
     Dosage: 1.5 MILLIGRAM DAILY;
     Route: 048
     Dates: start: 20140103, end: 20140103
  2. PREDNISONE [Concomitant]
     Indication: SYSTEMIC LUPUS ERYTHEMATOSUS
  3. PREDNISONE [Concomitant]
     Indication: FIBROMYALGIA
  4. NEURONTIN [Concomitant]
     Indication: SYSTEMIC LUPUS ERYTHEMATOSUS
  5. NEURONTIN [Concomitant]
     Indication: FIBROMYALGIA
  6. OXYCODONE [Concomitant]
     Indication: SYSTEMIC LUPUS ERYTHEMATOSUS
  7. OXYCODONE [Concomitant]
     Indication: FIBROMYALGIA

REACTIONS (1)
  - Fatigue [Not Recovered/Not Resolved]
